FAERS Safety Report 5988312-1 (Version None)
Quarter: 2008Q4

REPORT INFORMATION
  Report Type: 
  Country: None (occurrence: None)
  Receive Date: 20081204
  Receipt Date: 20081118
  Transmission Date: 20090506
  Serious: No
  Sender: FDA-Public Use
  Company Number: 8039665

PATIENT
  Age: 31 Year
  Sex: Male

DRUGS (2)
  1. KEPPRA [Suspect]
     Dosage: 1000 MG 2/D PO
     Route: 048
     Dates: end: 20080926
  2. KEPPRA [Suspect]
     Dosage: 500 MG 2/D PO
     Route: 048
     Dates: start: 20080927

REACTIONS (1)
  - PLATELET COUNT DECREASED [None]
